FAERS Safety Report 12215514 (Version 1)
Quarter: 2016Q1

REPORT INFORMATION
  Report Type: Report from Study
  Country: JP (occurrence: JP)
  Receive Date: 20160328
  Receipt Date: 20160328
  Transmission Date: 20160526
  Serious: Yes (Life-Threatening, Hospitalization)
  Sender: FDA-Public Use
  Company Number: JP-ASTRAZENECA-2016SE33359

PATIENT
  Age: 28473 Day
  Sex: Male

DRUGS (17)
  1. NOVOLIN 30R [Concomitant]
     Active Substance: INSULIN HUMAN
  2. PRECIPITATED CALCIUM CARBONATE [Concomitant]
     Active Substance: CALCIUM CARBONATE
     Route: 048
  3. MICARDIS [Concomitant]
     Active Substance: TELMISARTAN
     Route: 048
  4. L-CARTIN [Concomitant]
     Active Substance: LEVOCARNITINE HYDROCHLORIDE
  5. MERISLON [Concomitant]
     Active Substance: BETAHISTINE MESILATE
  6. GASTER [Concomitant]
     Active Substance: FAMOTIDINE
  7. CONIEL [Concomitant]
     Active Substance: BENIDIPINE HYDROCHLORIDE
  8. CEROCRAL [Concomitant]
     Active Substance: IFENPRODIL
     Route: 048
  9. WARFARIN [Concomitant]
     Active Substance: WARFARIN
  10. PURSENNID [Concomitant]
     Active Substance: SENNOSIDES A AND B
  11. MIRCERA [Concomitant]
     Active Substance: METHOXY POLYETHYLENE GLYCOL-EPOETIN BETA
  12. TRAVELMIN [Concomitant]
     Active Substance: DIMENHYDRINATE
  13. VOGLIBOSE [Concomitant]
     Active Substance: VOGLIBOSE
  14. ONGLYZA [Suspect]
     Active Substance: SAXAGLIPTIN HYDROCHLORIDE
     Indication: TYPE 2 DIABETES MELLITUS
     Route: 048
     Dates: start: 20150319
  15. FOSRENOL [Concomitant]
     Active Substance: LANTHANUM CARBONATE
     Route: 048
  16. CARNACULIN [Concomitant]
     Active Substance: KALLIDINOGENASE
     Route: 048
  17. LIPITOR [Concomitant]
     Active Substance: ATORVASTATIN CALCIUM

REACTIONS (1)
  - Intestinal ischaemia [Recovered/Resolved]

NARRATIVE: CASE EVENT DATE: 20150604
